FAERS Safety Report 9101687 (Version 1)
Quarter: 2013Q1

REPORT INFORMATION
  Report Type: Spontaneous
  Country: US (occurrence: None)
  Receive Date: 20130220
  Receipt Date: 20130220
  Transmission Date: 20140127
  Serious: No
  Sender: FDA-Public Use
  Company Number: None

PATIENT
  Age: 69 Year
  Sex: Male
  Weight: 72.58 kg

DRUGS (1)
  1. AMITIZA [Suspect]
     Indication: CONSTIPATION
     Dosage: 8 MCG  2X DAILY WITH FOOD  UNK?02/05/2013  --  02/13/2013
     Dates: start: 20130205, end: 20120213

REACTIONS (2)
  - Blood pressure increased [None]
  - Heart rate increased [None]
